FAERS Safety Report 14530817 (Version 1)
Quarter: 2018Q1

REPORT INFORMATION
  Report Type: Spontaneous
  Country: US (occurrence: US)
  Receive Date: 20180213
  Receipt Date: 20180213
  Transmission Date: 20180509
  Serious: Yes (Other)
  Sender: FDA-Public Use
  Company Number: None

PATIENT
  Age: 31 Year
  Sex: Female
  Weight: 60.75 kg

DRUGS (7)
  1. INDERAL [Concomitant]
     Active Substance: PROPRANOLOL HYDROCHLORIDE
  2. REGLAN [Suspect]
     Active Substance: METOCLOPRAMIDE HYDROCHLORIDE
     Indication: MIGRAINE
     Route: 042
     Dates: start: 20180208, end: 20180208
  3. ZOMIG [Concomitant]
     Active Substance: ZOLMITRIPTAN
  4. BACLOFEN. [Concomitant]
     Active Substance: BACLOFEN
  5. ADVIL [Concomitant]
     Active Substance: IBUPROFEN
  6. ATIVAN [Concomitant]
     Active Substance: LORAZEPAM
  7. TOPAMAX [Concomitant]
     Active Substance: TOPIRAMATE

REACTIONS (8)
  - Fatigue [None]
  - Panic attack [None]
  - Hyperventilation [None]
  - Crying [None]
  - Feeling abnormal [None]
  - Paranoia [None]
  - Anxiety [None]
  - Chest pain [None]

NARRATIVE: CASE EVENT DATE: 20180208
